FAERS Safety Report 5503287-7 (Version None)
Quarter: 2007Q4

REPORT INFORMATION
  Report Type: 
  Country: None (occurrence: None)
  Receive Date: 20071031
  Receipt Date: 20071025
  Transmission Date: 20080405
  Serious: Yes (Hospitalization)
  Sender: FDA-Public Use
  Company Number: GB-ROXANE LABORATORIES, INC-2007-BP-23329RO

PATIENT
  Age: 36 Year
  Sex: Female

DRUGS (5)
  1. AZATHIOPRINE [Suspect]
     Indication: CROHN'S DISEASE
  2. CEFUROXIME [Concomitant]
  3. METRONIDAZOLE [Concomitant]
  4. GENTAMICIN [Concomitant]
  5. TAZOCILLIN [Concomitant]

REACTIONS (5)
  - DISSEMINATED INTRAVASCULAR COAGULATION [None]
  - PANCYTOPENIA [None]
  - PERITONITIS [None]
  - PYREXIA [None]
  - TACHYCARDIA [None]
